FAERS Safety Report 8330217-5 (Version None)
Quarter: 2012Q2

REPORT INFORMATION
  Report Type: 
  Country: None (occurrence: None)
  Receive Date: 20120502
  Receipt Date: 20120424
  Transmission Date: 20120825
  Serious: Yes (Hospitalization)
  Sender: FDA-Public Use
  Company Number: ES-FRI-1000030208

PATIENT
  Age: 65 Year
  Sex: Male

DRUGS (2)
  1. TRILEPTAL [Suspect]
     Indication: EPILEPSY
     Dosage: 1200 MG
     Route: 048
     Dates: start: 20090101
  2. ESCITALOPRAM [Suspect]
     Indication: ANXIETY
     Dosage: 15 MG
     Route: 048
     Dates: start: 20090101

REACTIONS (2)
  - HYPONATRAEMIA [None]
  - DRUG INTERACTION [None]
